FAERS Safety Report 24868442 (Version 1)
Quarter: 2025Q1

REPORT INFORMATION
  Report Type: Spontaneous
  Country: DE (occurrence: DE)
  Receive Date: 20250121
  Receipt Date: 20250121
  Transmission Date: 20250409
  Serious: Yes (Other)
  Sender: TEVA
  Company Number: DE-TEVA-VS-3286542

PATIENT
  Age: 26 Year
  Sex: Male

DRUGS (2)
  1. HYDROMORPHONE HYDROCHLORIDE [Suspect]
     Active Substance: HYDROMORPHONE HYDROCHLORIDE
     Indication: Abdominal pain upper
     Dosage: DOSAGE: 1-0-1
     Route: 065
     Dates: start: 2024
  2. FINALGON [Concomitant]
     Indication: Back pain
     Route: 065

REACTIONS (2)
  - Syncope [Recovered/Resolved]
  - Confusional state [Recovered/Resolved]
